FAERS Safety Report 15296903 (Version 1)
Quarter: 2018Q3

REPORT INFORMATION
  Report Type: Spontaneous
  Country: NL (occurrence: NL)
  Receive Date: 20180820
  Receipt Date: 20180820
  Transmission Date: 20181010
  Serious: Yes (Other)
  Sender: FDA-Public Use
  Company Number: NL-RICON PHARMA, LLC-RIC201808-000867

PATIENT
  Age: 64 Year
  Sex: Female

DRUGS (8)
  1. HYPROMELLOSE [Concomitant]
     Active Substance: HYPROMELLOSES
  2. SODIUM BICARBONATE. [Concomitant]
     Active Substance: SODIUM BICARBONATE
  3. OXYBUPROCAINE [Concomitant]
     Active Substance: BENOXINATE
     Route: 061
  4. LIDOCAINE. [Suspect]
     Active Substance: LIDOCAINE
     Indication: BLEPHAROPLASTY
  5. CARBOMER [Concomitant]
     Active Substance: CARBOMER
     Dosage: 2 MG/G
  6. LIDOCAINE. [Suspect]
     Active Substance: LIDOCAINE
     Indication: PTOSIS REPAIR
  7. ADRENALINE [Concomitant]
     Active Substance: EPINEPHRINE
  8. TOBRADEX [Concomitant]
     Active Substance: DEXAMETHASONE\TOBRAMYCIN
     Indication: CONJUNCTIVITIS

REACTIONS (2)
  - Blindness [Recovered/Resolved]
  - Angle closure glaucoma [Recovered/Resolved]
